FAERS Safety Report 6140489-3 (Version None)
Quarter: 2009Q1

REPORT INFORMATION
  Report Type: 
  Country: None (occurrence: None)
  Receive Date: 20090331
  Receipt Date: 20090316
  Transmission Date: 20090719
  Serious: Yes (Hospitalization)
  Sender: FDA-Public Use
  Company Number: 2009000807

PATIENT
  Age: 48 Year
  Sex: Male
  Weight: 78.9 kg

DRUGS (9)
  1. ERLOTINIB (ERLOTINIB) (TABLET) (ERLOTINIB) [Suspect]
     Indication: HEAD AND NECK CANCER
     Dosage: (150 MG, QD), ORAL
     Route: 048
     Dates: start: 20090202
  2. CISPLATIN [Suspect]
     Indication: HEAD AND NECK CANCER
     Dosage: (100 MG/M2, Q3W)
     Dates: start: 20090209
  3. LOVASTATIN [Concomitant]
  4. APREPITANT [Concomitant]
  5. ONDANSETRON HCL [Concomitant]
  6. OXYCODONE HCL [Concomitant]
  7. PROCHLORPERAZINE MALEATE [Concomitant]
  8. AMIFOSTINE (AMIFOSTINE) [Concomitant]
  9. OMEPRAZOLE [Concomitant]

REACTIONS (6)
  - DRUG DOSE OMISSION [None]
  - DRUG ERUPTION [None]
  - DRUG INEFFECTIVE [None]
  - INJECTION SITE RASH [None]
  - RADIATION MUCOSITIS [None]
  - WEIGHT DECREASED [None]
